FAERS Safety Report 19686853 (Version 1)
Quarter: 2021Q3

REPORT INFORMATION
  Report Type: Spontaneous
  Country: FR (occurrence: FR)
  Receive Date: 20210811
  Receipt Date: 20210811
  Transmission Date: 20211014
  Serious: Yes (Other)
  Sender: FDA-Public Use
  Company Number: FR-MYLANLABS-2021M1049364

PATIENT
  Sex: Female

DRUGS (2)
  1. METFORMIN [Suspect]
     Active Substance: METFORMIN HYDROCHLORIDE
     Indication: TYPE 2 DIABETES MELLITUS
     Dosage: UNK UNK, TID
  2. LANTUS [Concomitant]
     Active Substance: INSULIN GLARGINE
     Indication: TYPE 2 DIABETES MELLITUS
     Dosage: 46 INTERNATIONAL UNIT

REACTIONS (12)
  - Fatigue [Unknown]
  - Myalgia [Unknown]
  - Tachycardia [Unknown]
  - Angina pectoris [Unknown]
  - Chills [Unknown]
  - Confusional state [Unknown]
  - Dry mouth [Unknown]
  - Diarrhoea [Unknown]
  - Tremor [Unknown]
  - Headache [Unknown]
  - Hot flush [Unknown]
  - Hunger [Unknown]
